FAERS Safety Report 4481807-1 (Version None)
Quarter: 2004Q3

REPORT INFORMATION
  Report Type: 
  Country: None (occurrence: None)
  Receive Date: 20040921
  Receipt Date: 20031118
  Transmission Date: 20050211
  Serious: Yes (Death)
  Sender: FDA-Public Use
  Company Number: 163-20785-03110420

PATIENT
  Age: 66 Year
  Sex: Male

DRUGS (1)
  1. THALOMID [Suspect]
     Indication: COLON CANCER
     Dosage: 200 MG, DAILY, ORAL
     Route: 048
     Dates: start: 20030620, end: 20030101

REACTIONS (1)
  - DEATH [None]
